FAERS Safety Report 10488159 (Version 1)
Quarter: 2014Q4

REPORT INFORMATION
  Report Type: Report from Study
  Country: US (occurrence: US)
  Receive Date: 20141002
  Receipt Date: 20141002
  Transmission Date: 20150528
  Serious: Yes (Other)
  Sender: FDA-Public Use
  Company Number: US-ROCHE-1467661

PATIENT
  Sex: Male

DRUGS (5)
  1. OMEGA 3 FATTY ACIDS [Concomitant]
     Active Substance: OMEGA-3 FATTY ACIDS
  2. INSULIN [Concomitant]
     Active Substance: INSULIN NOS
     Dosage: 29G X 8 MM
     Route: 065
  3. LEVOTHYROXINE [Concomitant]
     Active Substance: LEVOTHYROXINE
     Route: 048
  4. VYVANSE [Concomitant]
     Active Substance: LISDEXAMFETAMINE DIMESYLATE
     Route: 048
  5. NUTROPIN AQ [Suspect]
     Active Substance: SOMATROPIN
     Indication: GROWTH HORMONE DEFICIENCY
     Route: 058

REACTIONS (15)
  - Spinal X-ray abnormal [Unknown]
  - Joint range of motion decreased [Unknown]
  - Scoliosis [Unknown]
  - Gynaecomastia [Unknown]
  - Adipomastia [Unknown]
  - Gait disturbance [Unknown]
  - Hyperacusis [Unknown]
  - Scar [Unknown]
  - Weight increased [Unknown]
  - Deafness unilateral [Unknown]
  - Spinal deformity [Unknown]
  - Melanocytic naevus [Unknown]
  - Growth retardation [Unknown]
  - Skin lesion [Unknown]
  - Basal cell carcinoma [Unknown]
